FAERS Safety Report 26124381 (Version 1)
Quarter: 2025Q4

REPORT INFORMATION
  Report Type: Spontaneous
  Country: US (occurrence: US)
  Receive Date: 20251205
  Receipt Date: 20251205
  Transmission Date: 20260118
  Serious: No
  Sender: CELLTRION
  Company Number: US-CELLTRION INC.-2025US040475

PATIENT

DRUGS (3)
  1. YUFLYMA [Suspect]
     Active Substance: ADALIMUMAB-AATY
     Indication: Ankylosing spondylitis
     Dosage: 40MG, EVERY WEEK, SQ
     Route: 058
     Dates: start: 20251004
  2. YUFLYMA [Suspect]
     Active Substance: ADALIMUMAB-AATY
  3. VITAMIN D NOS [Concomitant]
     Active Substance: CHOLECALCIFEROL\ERGOCALCIFEROL

REACTIONS (3)
  - Device malfunction [Not Recovered/Not Resolved]
  - Drug dose omission by device [Not Recovered/Not Resolved]
  - Intentional product use issue [Unknown]

NARRATIVE: CASE EVENT DATE: 20251101
